FAERS Safety Report 25975407 (Version 4)
Quarter: 2025Q4

REPORT INFORMATION
  Report Type: Spontaneous
  Country: US (occurrence: None)
  Receive Date: 20251029
  Receipt Date: 20251125
  Transmission Date: 20260117
  Serious: Yes (Other)
  Sender: UCB
  Company Number: US-UCBSA-2025067145

PATIENT
  Age: 55 Year

DRUGS (1)
  1. NAYZILAM [Suspect]
     Active Substance: MIDAZOLAM
     Indication: Epilepsy
     Dosage: 1 SPRAY (5 MG DOSE) INTO ONE NOSTRIL

REACTIONS (4)
  - Seizure [Recovered/Resolved]
  - Therapy interrupted [Unknown]
  - Product packaging quantity issue [Unknown]
  - Device issue [Unknown]
